FAERS Safety Report 10716793 (Version 1)
Quarter: 2015Q1

REPORT INFORMATION
  Report Type: Spontaneous
  Country: IN (occurrence: IN)
  Receive Date: 20150116
  Receipt Date: 20150116
  Transmission Date: 20150721
  Serious: Yes (Death, Other)
  Sender: FDA-Public Use
  Company Number: IN-ASTELLAS-2015US001396

PATIENT
  Age: 68 Year
  Sex: Male

DRUGS (4)
  1. PROGRAF [Suspect]
     Active Substance: TACROLIMUS\TACROLIMUS ANHYDROUS
     Indication: PROPHYLAXIS AGAINST TRANSPLANT REJECTION
     Dosage: 0.75 MG, TWICE DAILY
     Route: 048
     Dates: start: 20140410, end: 20150108
  2. UDILIV [Concomitant]
     Indication: PRODUCT USED FOR UNKNOWN INDICATION
     Route: 048
     Dates: end: 20150108
  3. ASPIRIN. [Concomitant]
     Active Substance: ASPIRIN
     Indication: PRODUCT USED FOR UNKNOWN INDICATION
     Dates: end: 20150108
  4. BECOSULES                          /01353701/ [Concomitant]
     Indication: PRODUCT USED FOR UNKNOWN INDICATION
     Dosage: UNK MG, THRICE DAILY
     Route: 048
     Dates: end: 20150108

REACTIONS (4)
  - Sepsis [Fatal]
  - Extradural haematoma [Fatal]
  - Cerebral haemorrhage [Fatal]
  - Hepatitis C [Fatal]

NARRATIVE: CASE EVENT DATE: 201501
